FAERS Safety Report 9417443 (Version 1)
Quarter: 2013Q3

REPORT INFORMATION
  Report Type: Spontaneous
  Country: US (occurrence: US)
  Receive Date: 20130724
  Receipt Date: 20130724
  Transmission Date: 20140515
  Serious: No
  Sender: FDA-Public Use
  Company Number: US-BRISTOL-MYERS SQUIBB COMPANY-18793018

PATIENT
  Age: 66 Year
  Sex: Female
  Weight: 97.5 kg

DRUGS (6)
  1. ELIQUIS [Suspect]
     Indication: ATRIAL FIBRILLATION
  2. CETIRIZINE [Concomitant]
     Indication: URTICARIA
  3. METOPROLOL [Concomitant]
     Dates: start: 201212
  4. LISINOPRIL [Concomitant]
     Dosage: 1/2 OF A 25MG/10MG PILL EVERY OTHER DAY?1DF:25MG/10MG
  5. ZINC [Concomitant]
  6. FISH OIL [Concomitant]
     Dosage: 1DF:1 PILL

REACTIONS (1)
  - Alopecia [Unknown]
